FAERS Safety Report 23695363 (Version 1)
Quarter: 2024Q2

REPORT INFORMATION
  Report Type: Report from Study
  Country: KR (occurrence: KR)
  Receive Date: 20240402
  Receipt Date: 20240402
  Transmission Date: 20240716
  Serious: Yes (Hospitalization, Other)
  Sender: FDA-Public Use
  Company Number: KR-JNJFOC-20240375785

PATIENT

DRUGS (1)
  1. REMICADE [Suspect]
     Active Substance: INFLIXIMAB
     Indication: Inflammatory bowel disease
     Route: 065

REACTIONS (24)
  - Tuberculosis [Unknown]
  - Hospitalisation [Unknown]
  - Neuropathy peripheral [Unknown]
  - IgA nephropathy [Unknown]
  - Intestinal stenosis [Unknown]
  - Fistula [Unknown]
  - Upper respiratory tract infection [Unknown]
  - Infusion related reaction [Unknown]
  - Otitis media [Unknown]
  - Herpes zoster reactivation [Unknown]
  - Epstein-Barr virus infection [Unknown]
  - Rash [Unknown]
  - Acne [Unknown]
  - Psoriasis [Unknown]
  - Hidradenitis [Unknown]
  - Headache [Unknown]
  - Alopecia [Unknown]
  - Leukopenia [Unknown]
  - Conjunctivitis [Unknown]
  - Blepharitis [Unknown]
  - Osteoporosis [Unknown]
  - Arthralgia [Unknown]
  - Liver function test abnormal [Unknown]
  - Exocrine pancreatic function test abnormal [Unknown]
